FAERS Safety Report 20628816 (Version 3)
Quarter: 2023Q4

REPORT INFORMATION
  Report Type: Spontaneous
  Country: JP (occurrence: JP)
  Receive Date: 20220323
  Receipt Date: 20231128
  Transmission Date: 20240110
  Serious: Yes (Other)
  Sender: FDA-Public Use
  Company Number: JP-DSJP-DSJ-2022-109242AA

PATIENT
  Age: 65 Year
  Sex: Male

DRUGS (1)
  1. ENHERTU [Suspect]
     Active Substance: FAM-TRASTUZUMAB DERUXTECAN-NXKI
     Indication: Gastric cancer
     Dosage: UNK
     Route: 065
     Dates: start: 202108

REACTIONS (5)
  - Ascites [Unknown]
  - Nausea [Unknown]
  - Pyrexia [Recovered/Resolved]
  - Blood bilirubin increased [Unknown]
  - Disease progression [Unknown]
